FAERS Safety Report 6958995-8 (Version None)
Quarter: 2010Q3

REPORT INFORMATION
  Report Type: 
  Country: None (occurrence: None)
  Receive Date: 20100831
  Receipt Date: 20100820
  Transmission Date: 20110219
  Serious: Yes (Other)
  Sender: FDA-Public Use
  Company Number: JP-PFIZER INC-2010070129

PATIENT

DRUGS (5)
  1. ZOLOFT [Suspect]
     Indication: PANIC DISORDER
     Dosage: 12.5 MG, 2X/DAY (IN AM AND PM) X 1 WEEK
     Route: 048
  2. ZOLOFT [Suspect]
     Dosage: 37.5 MG DAILY (25 MG IN AM + 12.5 MG PM)
     Route: 048
  3. ZOLOFT [Suspect]
     Dosage: 25 MG DAILY ( 12.5 MG 2 X DAILY (AM/PM)
     Route: 048
  4. ZOLOFT [Suspect]
     Dosage: 6.25 MG, 2X/DAY
     Route: 048
  5. SOLANAX [Concomitant]
     Indication: AUTONOMIC NERVOUS SYSTEM IMBALANCE
     Dosage: 0.4 MG, UNK
     Route: 048

REACTIONS (5)
  - DIZZINESS [None]
  - HYPOAESTHESIA [None]
  - LIMB DISCOMFORT [None]
  - LOSS OF CONSCIOUSNESS [None]
  - PALPITATIONS [None]
